FAERS Safety Report 7317255-6 (Version None)
Quarter: 2011Q1

REPORT INFORMATION
  Report Type: 
  Country: None (occurrence: None)
  Receive Date: 20110226
  Receipt Date: 20101013
  Transmission Date: 20110831
  Serious: No
  Sender: FDA-Public Use
  Company Number: US-ALLERGAN-1013192US

PATIENT
  Age: 61 Year
  Sex: Female

DRUGS (4)
  1. RESTASIS [Concomitant]
     Indication: DRY EYE
     Dosage: 1 GTT, BID
     Route: 047
  2. BOTOXA? [Suspect]
     Dosage: 80 UNITS, SINGLE
     Route: 030
     Dates: start: 20101008, end: 20101008
  3. BOTOXA? [Suspect]
     Indication: BLEPHAROSPASM
     Dosage: UNK
     Dates: start: 20100701, end: 20100701
  4. CELLUVISC [Concomitant]
     Indication: DRY EYE
     Dosage: 1 GTT, PRN
     Route: 047

REACTIONS (1)
  - INJECTION SITE INDURATION [None]
